FAERS Safety Report 19855103 (Version 1)
Quarter: 2021Q3

REPORT INFORMATION
  Report Type: Spontaneous
  Country: US (occurrence: US)
  Receive Date: 20210918
  Receipt Date: 20210918
  Transmission Date: 20211014
  Serious: Yes (Other)
  Sender: FDA-Public Use
  Company Number: None

PATIENT
  Sex: Male
  Weight: 77.85 kg

DRUGS (4)
  1. NEXIUM [Concomitant]
     Active Substance: ESOMEPRAZOLE MAGNESIUM
  2. MEGAMAN MULTI VITAMIN [Concomitant]
  3. ALLEGRA [Concomitant]
     Active Substance: FEXOFENADINE HYDROCHLORIDE
  4. ISOVUE 300 [Suspect]
     Active Substance: IOPAMIDOL
     Dosage: ?          QUANTITY:3 INJECTION(S);?
     Dates: start: 20210915

REACTIONS (7)
  - Burning sensation [None]
  - Musculoskeletal disorder [None]
  - Injection site extravasation [None]
  - Rash [None]
  - Chills [None]
  - Pruritus [None]
  - Contusion [None]
